FAERS Safety Report 9697288 (Version 2)
Quarter: 2013Q4

REPORT INFORMATION
  Report Type: Spontaneous
  Country: JP (occurrence: JP)
  Receive Date: 20131120
  Receipt Date: 20131220
  Transmission Date: 20140711
  Serious: Yes (Other)
  Sender: FDA-Public Use
  Company Number: JP-ELI_LILLY_AND_COMPANY-JP201311002961

PATIENT
  Sex: Male

DRUGS (5)
  1. STRATTERA [Suspect]
     Indication: ATTENTION DEFICIT/HYPERACTIVITY DISORDER
     Dosage: 20 MG, QD
     Route: 048
     Dates: start: 20130412, end: 20130618
  2. STRATTERA [Suspect]
     Dosage: 40 MG, QD
     Route: 048
     Dates: start: 20130619, end: 20131020
  3. RIVOTRIL [Concomitant]
     Indication: ANXIETY DISORDER
     Dosage: 6 MG, QD
     Route: 048
     Dates: start: 20101224
  4. KAMISHOYOSAN [Concomitant]
     Indication: ANXIETY DISORDER
     Dosage: 6 G, QD
     Route: 048
     Dates: start: 20101224
  5. LEXAPRO [Concomitant]
     Indication: DEPRESSION
     Dosage: 10 MG, QD
     Route: 048
     Dates: start: 20130517

REACTIONS (2)
  - Suicidal ideation [Recovered/Resolved]
  - Incorrect drug administration duration [Unknown]
